FAERS Safety Report 17959439 (Version 1)
Quarter: 2020Q2

REPORT INFORMATION
  Report Type: Spontaneous
  Country: NL (occurrence: NL)
  Receive Date: 20200630
  Receipt Date: 20200630
  Transmission Date: 20200714
  Serious: Yes (Death, Other)
  Sender: FDA-Public Use
  Company Number: NL-AMGEN-NLDSP2020103521

PATIENT
  Age: 9 Year
  Sex: Female

DRUGS (5)
  1. ENBREL [Suspect]
     Active Substance: ETANERCEPT
     Dosage: 0.8 MILLIGRAM/KILOGRAM, 2 TIMES/WK
     Route: 065
     Dates: end: 200201
  2. METHOTREXATE. [Concomitant]
     Active Substance: METHOTREXATE
     Indication: JUVENILE IDIOPATHIC ARTHRITIS
     Dosage: 2.5 MILLIGRAM
     Route: 065
  3. METHYLPREDNISOLONE. [Concomitant]
     Active Substance: METHYLPREDNISOLONE
     Indication: JUVENILE IDIOPATHIC ARTHRITIS
     Dosage: UNK
     Route: 065
  4. ENBREL [Suspect]
     Active Substance: ETANERCEPT
     Indication: JUVENILE IDIOPATHIC ARTHRITIS
     Dosage: 0.4 MILLIGRAM/KILOGRAM, 2 TIMES/WK
     Route: 065
     Dates: start: 2001
  5. REMICADE [Suspect]
     Active Substance: INFLIXIMAB
     Indication: JUVENILE IDIOPATHIC ARTHRITIS
     Dosage: 20 MILLIGRAM/KILOGRAM (1X/MTH)
     Route: 065
     Dates: start: 200201

REACTIONS (8)
  - Diffuse alveolar damage [Fatal]
  - Lung infiltration [Fatal]
  - Cutaneous tuberculosis [Unknown]
  - Respiratory failure [Fatal]
  - Circulatory collapse [Fatal]
  - Pneumonia lipoid [Fatal]
  - Drug ineffective [Unknown]
  - Cardiac arrest [Not Recovered/Not Resolved]
